FAERS Safety Report 26144719 (Version 1)
Quarter: 2025Q4

REPORT INFORMATION
  Report Type: Report from Study
  Country: CA (occurrence: CA)
  Receive Date: 20251211
  Receipt Date: 20251211
  Transmission Date: 20260117
  Serious: Yes (Hospitalization, Other)
  Sender: ABBVIE
  Company Number: CA-ABBVIE-6577966

PATIENT
  Age: 33 Year
  Sex: Male

DRUGS (1)
  1. RINVOQ [Suspect]
     Active Substance: UPADACITINIB
     Indication: Crohn^s disease
     Route: 048

REACTIONS (11)
  - Vomiting [Unknown]
  - Dehydration [Unknown]
  - Chills [Recovering/Resolving]
  - Mucosal disorder [Unknown]
  - Abdominal pain [Unknown]
  - Sepsis [Unknown]
  - Immunodeficiency [Unknown]
  - Metabolic acidosis [Unknown]
  - Food intolerance [Unknown]
  - Tremor [Unknown]
  - Hypotension [Recovered/Resolved]

NARRATIVE: CASE EVENT DATE: 20251101
